FAERS Safety Report 10774571 (Version 4)
Quarter: 2015Q2

REPORT INFORMATION
  Report Type: Report from Study
  Country: GB (occurrence: None)
  Receive Date: 20150126
  Receipt Date: 20150504
  Transmission Date: 20150821
  Serious: Yes (Other)
  Sender: FDA-Public Use
  Company Number: BTG00200

PATIENT
  Age: 85 Year
  Sex: Female
  Weight: 70 kg

DRUGS (8)
  1. ATROPINE (ATROPINE SULFATE) [Concomitant]
  2. DIGIFAB [Suspect]
     Active Substance: OVINE DIGOXIN IMMUNE FAB
     Indication: TOXICITY TO VARIOUS AGENTS
     Dates: start: 20150115
  3. DIGOXIN (DIGOXIN) [Suspect]
     Active Substance: DIGOXIN
     Indication: PRODUCT USED FOR UNKNOWN INDICATION
     Dosage: 125 UG, 14 TIMES, 1.75 MG
     Dates: start: 20150114
  4. SPIRONOLACTONE. [Concomitant]
     Active Substance: SPIRONOLACTONE
  5. LORATADINE. [Concomitant]
     Active Substance: LORATADINE
  6. APIXABAN [Concomitant]
     Active Substance: APIXABAN
  7. ISOPRENALINE [Concomitant]
     Active Substance: ISOPROTERENOL HYDROCHLORIDE
  8. FUROSEMIDE. [Concomitant]
     Active Substance: FUROSEMIDE

REACTIONS (9)
  - Atrial fibrillation [None]
  - Extrasystoles [None]
  - Toxicity to various agents [None]
  - Blood pressure diastolic decreased [None]
  - Bradycardia [None]
  - Heart rate decreased [None]
  - Blood potassium increased [None]
  - Blood pressure systolic increased [None]
  - Drug ineffective [None]

NARRATIVE: CASE EVENT DATE: 20150115
